FAERS Safety Report 8278943-0 (Version None)
Quarter: 2012Q2

REPORT INFORMATION
  Report Type: 
  Country: None (occurrence: None)
  Receive Date: 20120412
  Receipt Date: 20120105
  Transmission Date: 20120825
  Serious: No
  Sender: FDA-Public Use
  Company Number: US-ASTRAZENECA-2012SE01057

PATIENT
  Age: 55 Year
  Sex: Female

DRUGS (13)
  1. NEXIUM [Suspect]
     Indication: ABDOMINAL DISCOMFORT
     Route: 048
  2. NEXIUM [Suspect]
     Route: 048
  3. AMBIEN [Concomitant]
     Indication: SLEEP DISORDER
  4. NEXIUM [Suspect]
     Route: 048
  5. REMERON [Concomitant]
     Indication: DEPRESSION
  6. NEXIUM [Suspect]
     Indication: GASTROOESOPHAGEAL REFLUX DISEASE
     Route: 048
  7. NEXIUM [Suspect]
     Indication: FLATULENCE
     Route: 048
  8. NEXIUM [Suspect]
     Route: 048
  9. HYDROCODONE [Concomitant]
     Indication: PAIN
  10. SENHARC [Concomitant]
  11. ALPRAZOLAM [Concomitant]
     Indication: ANXIETY
  12. SEROQUEL XR [Suspect]
     Indication: DEPRESSION
     Route: 048
  13. CYCLOPROMIDE [Concomitant]

REACTIONS (3)
  - BACK PAIN [None]
  - PAIN IN EXTREMITY [None]
  - INAPPROPRIATE SCHEDULE OF DRUG ADMINISTRATION [None]
